FAERS Safety Report 7322910-8 (Version None)
Quarter: 2011Q1

REPORT INFORMATION
  Report Type: 
  Country: None (occurrence: None)
  Receive Date: 20110217
  Receipt Date: 20110204
  Transmission Date: 20110831
  Serious: Yes (Death, Life-Threatening, Hospitalization)
  Sender: FDA-Public Use
  Company Number: TCI2010A05190

PATIENT
  Age: 66 Year
  Sex: Male

DRUGS (6)
  1. DIOVAN [Suspect]
     Indication: HYPERTENSION
     Dosage: 40 MG (40 MG,1 IN 1 D) PER ORAL
     Route: 048
     Dates: start: 20100419, end: 20101111
  2. SUCRALFATE [Concomitant]
  3. FASTIC (NATEGLINIDE) [Suspect]
     Dosage: 90 MG (30 MG,3 IN 1 D) PER ORAL
     Route: 048
     Dates: start: 20100419, end: 20101111
  4. MINIPLANON (ALLOPURINOL) [Suspect]
     Indication: HYPERURICAEMIA
     Dosage: 100 MG (100 MG,1 IN 1 D) PER ORAL
     Route: 048
     Dates: start: 20070619, end: 20101111
  5. DIART (AZOSEMIDE) [Concomitant]
  6. LANSOPRAZOLE [Suspect]
     Indication: GASTRIC ULCER
     Dosage: 15 MG (15 MG,1 IN 1 D) PER ORAL
     Route: 048
     Dates: start: 20070724, end: 20101111

REACTIONS (9)
  - INTERSTITIAL LUNG DISEASE [None]
  - BLOOD CREATININE INCREASED [None]
  - RESPIRATORY FAILURE [None]
  - BRONCHIECTASIS [None]
  - RENAL IMPAIRMENT [None]
  - BLOOD UREA INCREASED [None]
  - URINE OUTPUT DECREASED [None]
  - PULMONARY OEDEMA [None]
  - LYMPHOCYTE STIMULATION TEST POSITIVE [None]
